FAERS Safety Report 10185092 (Version 1)
Quarter: 2014Q2

REPORT INFORMATION
  Report Type: Spontaneous
  Country: JP (occurrence: JP)
  Receive Date: 20140521
  Receipt Date: 20140521
  Transmission Date: 20141212
  Serious: Yes (Hospitalization)
  Sender: FDA-Public Use
  Company Number: PHHY2014JP059952

PATIENT
  Sex: Male

DRUGS (4)
  1. RIFAMPICIN SANDOZ [Suspect]
     Indication: PULMONARY TUBERCULOSIS
     Route: 048
  2. ISONIAZID [Concomitant]
     Indication: PULMONARY TUBERCULOSIS
  3. ESANBUTOL [Concomitant]
     Indication: PULMONARY TUBERCULOSIS
     Route: 048
  4. PYRAZINAMIDE [Concomitant]
     Indication: PULMONARY TUBERCULOSIS

REACTIONS (5)
  - Adrenal insufficiency [Recovered/Resolved]
  - Malaise [Recovered/Resolved]
  - Decreased appetite [Recovered/Resolved]
  - Hyponatraemia [Recovered/Resolved]
  - Pyrexia [Recovered/Resolved]
